FAERS Safety Report 7362219-X (Version None)
Quarter: 2011Q1

REPORT INFORMATION
  Report Type: 
  Country: None (occurrence: None)
  Receive Date: 20110318
  Receipt Date: 20110304
  Transmission Date: 20110831
  Serious: Yes (Other)
  Sender: FDA-Public Use
  Company Number: PHEH2008US08951

PATIENT
  Sex: Female

DRUGS (67)
  1. ZOMETA [Suspect]
     Dosage: UNK
     Dates: start: 20070701, end: 20070801
  2. AREDIA [Suspect]
     Indication: METASTASES TO BONE
     Dosage: 90 MG / MONTHLY
     Dates: start: 19980101, end: 20010101
  3. METHADON HCL TAB [Concomitant]
     Dosage: 20 MG / EVERY 3 HOURS
  4. FEMARA [Concomitant]
  5. TRASTUZUMAB [Concomitant]
  6. PROPOFOL [Concomitant]
  7. TAXOTERE [Concomitant]
     Dosage: 90 MG, UNK
  8. MEGACE [Concomitant]
  9. DECADRON [Concomitant]
     Dosage: UNK
  10. PROZAC [Concomitant]
     Dosage: UNK
  11. VIOXX [Concomitant]
     Dosage: UNK
  12. ZOFRAN [Concomitant]
     Dosage: UNK
  13. FLUZONE [Concomitant]
  14. DEXAMETHASONE [Concomitant]
  15. AMOXICILLIN [Concomitant]
  16. RADIATION [Concomitant]
     Indication: METASTASES TO BONE
  17. CARBOPLATIN [Concomitant]
  18. XELODA [Concomitant]
  19. ADRIAMYCIN PFS [Concomitant]
  20. SALAGEN [Concomitant]
     Dosage: UNK
  21. COMPAZINE [Concomitant]
     Dosage: UNK
  22. FENTANYL CITRATE [Concomitant]
  23. MUCINEX DM [Concomitant]
     Dosage: UNK
  24. EFEXOR                                  /USA/ [Concomitant]
     Dosage: UNK
  25. PERCOCET [Concomitant]
     Dosage: 10/325 / EVERY 4 HOURS
  26. MOTRIN [Concomitant]
  27. NAPROXEN [Concomitant]
  28. ARANESP [Concomitant]
  29. PROTONIX [Concomitant]
  30. CYTOXAN [Concomitant]
  31. DOCUSATE SODIUM [Concomitant]
     Dosage: UNK
  32. ACTIQ [Concomitant]
  33. DOLOPHINE HCL [Concomitant]
  34. AMOXICILLIN [Concomitant]
  35. POTASSIUM [Concomitant]
  36. CHEMOTHERAPEUTICS NOS [Concomitant]
     Indication: METASTASES TO BONE
     Dosage: UNK
     Dates: start: 19980801
  37. NEULASTA [Concomitant]
  38. NAVELBINE [Concomitant]
  39. CIPRO [Concomitant]
     Dosage: 500 MG, BID
     Route: 048
  40. SYNTHROID [Concomitant]
     Dosage: 10 MG
  41. DILAUDID [Concomitant]
     Dosage: 4 MG / AS NEEDED
  42. ADVIL LIQUI-GELS [Concomitant]
     Dosage: UNK
  43. AUGMENTAN ORAL [Concomitant]
     Dosage: UNK
  44. INDOCIN - SLOW RELEASE [Concomitant]
     Dosage: UNK
  45. POLYETHYLENE GLYCOL [Concomitant]
  46. LYRICA [Concomitant]
  47. HALOPERIDOL LACTATE [Concomitant]
  48. LORTAB [Concomitant]
  49. COUMADIN [Concomitant]
  50. ARIMIDEX [Concomitant]
  51. DEMEROL [Concomitant]
     Dosage: 50 MG
  52. PHENERGAN [Concomitant]
     Dosage: 25 MG
  53. DURAGESIC-50 [Concomitant]
     Dosage: 50 MCG / EVERY 3 DAYS
  54. TEMAZEPAM [Concomitant]
     Dosage: UNK
  55. DIPHENHYDRAMINE HYDROCHLORIDE [Concomitant]
  56. MIDAZOLAM HYDROCHLORIDE [Concomitant]
  57. ZOMETA [Suspect]
     Dosage: 4 MG, QMO
     Dates: start: 20020101, end: 20050210
  58. HERCEPTIN [Concomitant]
     Dosage: 140 MG, UNK
     Dates: end: 20050101
  59. FASLODEX [Concomitant]
  60. CARBOPLATIN [Concomitant]
     Dosage: UNK
     Dates: end: 20040105
  61. GEMZAR [Concomitant]
  62. PROCRIT                            /00909301/ [Concomitant]
     Dosage: 40,0000  / WEEKLY
     Route: 058
  63. MIRALAX [Concomitant]
     Dosage: UNK
  64. ZYPREXA [Concomitant]
     Dosage: UNK
  65. FAMOTIDINE [Concomitant]
  66. DARVOCET-N 100 [Concomitant]
  67. TORECAN [Concomitant]

REACTIONS (57)
  - TOOTHACHE [None]
  - DENTURE WEARER [None]
  - PANCYTOPENIA [None]
  - WEIGHT DECREASED [None]
  - VOMITING [None]
  - DEPRESSION [None]
  - URINARY TRACT INFECTION [None]
  - MUSCULOSKELETAL STIFFNESS [None]
  - DISABILITY [None]
  - DENTAL CARIES [None]
  - BACK PAIN [None]
  - ANAEMIA OF MALIGNANT DISEASE [None]
  - BONE LESION [None]
  - RECTAL HAEMORRHAGE [None]
  - MASTICATION DISORDER [None]
  - BONE DISORDER [None]
  - SENSITIVITY OF TEETH [None]
  - BREAST CANCER METASTATIC [None]
  - NECK PAIN [None]
  - SPINAL OSTEOARTHRITIS [None]
  - PYREXIA [None]
  - TOOTH ABSCESS [None]
  - DYSPNOEA [None]
  - ADRENAL ADENOMA [None]
  - OSTEONECROSIS OF JAW [None]
  - ANXIETY [None]
  - IMPAIRED HEALING [None]
  - NAUSEA [None]
  - WHITE BLOOD CELL COUNT [None]
  - NEURALGIA [None]
  - INJURY [None]
  - ANHEDONIA [None]
  - METASTASES TO BONE [None]
  - BACTERIAL TEST NEGATIVE [None]
  - AXILLARY MASS [None]
  - BLOOD POTASSIUM DECREASED [None]
  - OSTEOARTHRITIS [None]
  - MALNUTRITION [None]
  - CERVICAL SPINAL STENOSIS [None]
  - GRANULOCYTOPENIA [None]
  - DEAFNESS [None]
  - ARTERIOSCLEROSIS [None]
  - STOMATITIS [None]
  - BONE MARROW FAILURE [None]
  - PAIN [None]
  - EMPHYSEMA [None]
  - GASTRITIS [None]
  - ANAEMIA [None]
  - MUSCULOSKELETAL PAIN [None]
  - COMPRESSION FRACTURE [None]
  - INTERVERTEBRAL DISC PROTRUSION [None]
  - RED BLOOD CELLS URINE [None]
  - URINE ANALYSIS [None]
  - PANCOAST'S TUMOUR [None]
  - COLONIC STENOSIS [None]
  - RESPIRATORY TRACT INFECTION [None]
  - NEOPLASM MALIGNANT [None]
